FAERS Safety Report 24222329 (Version 7)
Quarter: 2025Q1

REPORT INFORMATION
  Report Type: Report from Study
  Country: US (occurrence: US)
  Receive Date: 20240819
  Receipt Date: 20250217
  Transmission Date: 20250409
  Serious: Yes (Hospitalization, Other)
  Sender: BAYER HEALTHCARE PHARMACEUTICALS INC.
  Company Number: US-BAYER-2024A116286

PATIENT
  Age: 74 Year
  Sex: Female
  Weight: 55.329 kg

DRUGS (19)
  1. ADEMPAS [Suspect]
     Active Substance: RIOCIGUAT
     Indication: Pulmonary arterial hypertension
  2. ADEMPAS [Suspect]
     Active Substance: RIOCIGUAT
     Indication: Product used for unknown indication
     Dosage: 1.5 MG, TID
     Route: 048
     Dates: start: 202403
  3. ADEMPAS [Suspect]
     Active Substance: RIOCIGUAT
     Indication: Pulmonary arterial hypertension
     Dosage: 1 MG, TID
     Route: 048
     Dates: start: 202408
  4. ADEMPAS [Suspect]
     Active Substance: RIOCIGUAT
     Indication: Pulmonary arterial hypertension
     Dates: start: 2024
  5. TYVASO [Suspect]
     Active Substance: TREPROSTINIL
     Indication: Pulmonary arterial hypertension
     Dosage: 54 ?G, QID
     Dates: start: 202403
  6. TYVASO [Suspect]
     Active Substance: TREPROSTINIL
     Indication: Pulmonary arterial hypertension
     Dosage: 54 ?G, QID
     Dates: start: 2024
  7. OPSUMIT [Concomitant]
     Active Substance: MACITENTAN
  8. OFEV [Concomitant]
     Active Substance: NINTEDANIB
     Indication: Pulmonary fibrosis
     Route: 048
  9. OFEV [Concomitant]
     Active Substance: NINTEDANIB
     Indication: Interstitial lung disease
     Route: 048
     Dates: start: 202205
  10. OFEV [Concomitant]
     Active Substance: NINTEDANIB
     Indication: Product used for unknown indication
  11. DOXYCYCLINE [Concomitant]
     Active Substance: DOXYCYCLINE
     Dates: start: 202408
  12. VITAMIN D3 [Concomitant]
     Active Substance: CHOLECALCIFEROL
     Dates: start: 2024
  13. VITAMIN K2 (MK 7) WITH NATTOKINASE [Concomitant]
     Dates: start: 2024
  14. CALCIUM [Concomitant]
     Active Substance: CALCIUM
     Dates: start: 2024
  15. GEMTESA [Concomitant]
     Active Substance: VIBEGRON
     Dates: start: 2024
  16. OMEPRAZOLE [Concomitant]
     Active Substance: OMEPRAZOLE
     Dates: start: 2024
  17. OXYGEN [Concomitant]
     Active Substance: OXYGEN
  18. MYCOPHENOLIC ACID [Concomitant]
     Active Substance: MYCOPHENOLIC ACID
  19. PREDNISONE [Concomitant]
     Active Substance: PREDNISONE

REACTIONS (23)
  - Hypotension [None]
  - Loss of consciousness [Recovered/Resolved]
  - Syncope [None]
  - Osteopenia [None]
  - Respiration abnormal [Recovered/Resolved]
  - Chest discomfort [None]
  - Dysgeusia [None]
  - Abnormal loss of weight [Not Recovered/Not Resolved]
  - Feeling abnormal [Not Recovered/Not Resolved]
  - Musculoskeletal stiffness [None]
  - Dizziness [Recovered/Resolved]
  - Gastrooesophageal reflux disease [None]
  - Product dose omission issue [None]
  - Pain [Not Recovered/Not Resolved]
  - Asthenia [Not Recovered/Not Resolved]
  - Nausea [Not Recovered/Not Resolved]
  - Eye swelling [Not Recovered/Not Resolved]
  - Taste disorder [None]
  - Malaise [Not Recovered/Not Resolved]
  - Musculoskeletal stiffness [None]
  - Incorrect product administration duration [None]
  - Eye swelling [None]
  - Hypertonic bladder [None]

NARRATIVE: CASE EVENT DATE: 20240101
